FAERS Safety Report 20999580 (Version 1)
Quarter: 2022Q2

REPORT INFORMATION
  Report Type: Spontaneous
  Country: US (occurrence: None)
  Receive Date: 20220622
  Receipt Date: 20220622
  Transmission Date: 20220721
  Serious: Yes (Other)
  Sender: FDA-Public Use
  Company Number: None

PATIENT
  Age: 72 Year
  Sex: Female
  Weight: 61.23 kg

DRUGS (12)
  1. CARVEDILOL PHOSPHATE [Suspect]
     Active Substance: CARVEDILOL PHOSPHATE
     Indication: Hypertension
     Dosage: FREQUENCY : DAILY;?
     Route: 048
     Dates: start: 20220201, end: 20220429
  2. ZESTRIL [Concomitant]
     Active Substance: LISINOPRIL
  3. LOW DOSE ASPIRIN [Concomitant]
     Active Substance: ASPIRIN
  4. HYDRALAZINE [Concomitant]
     Active Substance: HYDRALAZINE HYDROCHLORIDE
  5. CARVEDILOL [Concomitant]
     Active Substance: CARVEDILOL
  6. SYNTHROID [Concomitant]
     Active Substance: LEVOTHYROXINE SODIUM
  7. VITAMIN C [Concomitant]
     Active Substance: ASCORBIC ACID
  8. COLLAGEN [Concomitant]
     Active Substance: COLLAGEN
  9. VITAMIN D3 [Concomitant]
     Active Substance: CHOLECALCIFEROL
  10. Vit K2 [Concomitant]
  11. ACV + HONEY + WATER [Concomitant]
  12. Tomato juice [Concomitant]

REACTIONS (16)
  - Headache [None]
  - Chest pain [None]
  - Palpitations [None]
  - Nightmare [None]
  - Nausea [None]
  - Insomnia [None]
  - Palpitations [None]
  - Dry mouth [None]
  - Thyroid disorder [None]
  - Exophthalmos [None]
  - Fatigue [None]
  - Alopecia [None]
  - Madarosis [None]
  - Product substitution issue [None]
  - Eye pain [None]
  - Suspected product quality issue [None]

NARRATIVE: CASE EVENT DATE: 20220209
